FAERS Safety Report 20323684 (Version 1)
Quarter: 2022Q1

REPORT INFORMATION
  Report Type: Spontaneous
  Country: US (occurrence: None)
  Receive Date: 20220111
  Receipt Date: 20220111
  Transmission Date: 20220423
  Serious: No
  Sender: FDA-Public Use
  Company Number: None

PATIENT
  Sex: Male

DRUGS (1)
  1. ENBREL [Suspect]
     Active Substance: ETANERCEPT
     Indication: Rheumatoid arthritis
     Dosage: FREQUENCY : WEEKLY;?
     Route: 058
     Dates: start: 20210902

REACTIONS (9)
  - Arthralgia [None]
  - Therapeutic product effect decreased [None]
  - Condition aggravated [None]
  - Decreased activity [None]
  - Weight decreased [None]
  - Arthralgia [None]
  - Arthralgia [None]
  - Back pain [None]
  - Arthralgia [None]
